FAERS Safety Report 9121131 (Version 2)
Quarter: 2013Q2

REPORT INFORMATION
  Report Type: Spontaneous
  Country: CO (occurrence: CO)
  Receive Date: 20130226
  Receipt Date: 20130429
  Transmission Date: 20140414
  Serious: Yes (Other)
  Sender: FDA-Public Use
  Company Number: PHHY2013CO007879

PATIENT
  Age: 30 Year
  Sex: Female

DRUGS (4)
  1. GILENYA [Suspect]
     Indication: RELAPSING-REMITTING MULTIPLE SCLEROSIS
     Dosage: 0.5 MG, QD
     Route: 048
     Dates: start: 201203, end: 20130105
  2. GILENYA [Suspect]
     Dosage: 0.5 MG, QD
     Route: 048
     Dates: start: 20130201
  3. GILENYA [Suspect]
     Dosage: 0.5 MG, QD
     Route: 048
     Dates: start: 20130224
  4. INTERFERON BETA 1B [Concomitant]
     Dates: start: 2008

REACTIONS (4)
  - Vaginal haemorrhage [Recovered/Resolved]
  - Fall [Recovered/Resolved]
  - Maternal exposure during pregnancy [Unknown]
  - Drug administration error [Unknown]
